FAERS Safety Report 8103384-6 (Version None)
Quarter: 2012Q1

REPORT INFORMATION
  Report Type: 
  Country: None (occurrence: None)
  Receive Date: 20120201
  Receipt Date: 20120130
  Transmission Date: 20120608
  Serious: Yes (Other)
  Sender: FDA-Public Use
  Company Number: US-PFIZER INC-2012025196

PATIENT
  Sex: Female

DRUGS (1)
  1. CORDARONE [Suspect]
     Indication: HEART RATE IRREGULAR
     Dosage: UNK, 2X/DAY
     Route: 048
     Dates: start: 20111201, end: 20120127

REACTIONS (2)
  - AMNESIA [None]
  - CONFUSIONAL STATE [None]
